FAERS Safety Report 24647517 (Version 1)
Quarter: 2024Q4

REPORT INFORMATION
  Report Type: Spontaneous
  Country: US (occurrence: None)
  Receive Date: 20241120
  Receipt Date: 20241120
  Transmission Date: 20250115
  Serious: Yes (Other)
  Sender: Public
  Company Number: None

PATIENT
  Age: 33 Year
  Sex: Female
  Weight: 75.6 kg

DRUGS (3)
  1. SERTRALINE [Suspect]
     Active Substance: SERTRALINE HYDROCHLORIDE
     Indication: Perinatal depression
     Dosage: OTHER QUANTITY : 1 TABLET(S);?FREQUENCY : DAILY;?
     Route: 048
     Dates: start: 20241107, end: 20241114
  2. VITAMIN D3 [Concomitant]
     Active Substance: CHOLECALCIFEROL
  3. Prenatal multivitamin [Concomitant]

REACTIONS (7)
  - Angioedema [None]
  - Eye swelling [None]
  - Swelling face [None]
  - Peripheral swelling [None]
  - Peripheral swelling [None]
  - Constipation [None]
  - Gastrointestinal disorder [None]

NARRATIVE: CASE EVENT DATE: 20241112
